FAERS Safety Report 6476950-1 (Version None)
Quarter: 2009Q4

REPORT INFORMATION
  Report Type: 
  Country: None (occurrence: None)
  Receive Date: 20091204
  Receipt Date: 20091204
  Transmission Date: 20100525
  Serious: Yes (Life-Threatening, Hospitalization)
  Sender: FDA-Public Use
  Company Number: None

PATIENT
  Age: 24 Year
  Sex: Female
  Weight: 58.9676 kg

DRUGS (1)
  1. LAMICTAL [Suspect]

REACTIONS (3)
  - GRAND MAL CONVULSION [None]
  - PRODUCT SUBSTITUTION ISSUE [None]
  - TABLET ISSUE [None]
